FAERS Safety Report 5379406-2 (Version None)
Quarter: 2007Q3

REPORT INFORMATION
  Report Type: 
  Country: None (occurrence: None)
  Receive Date: 20070705
  Receipt Date: 20070626
  Transmission Date: 20080115
  Serious: Yes (Hospitalization)
  Sender: FDA-Public Use
  Company Number: IT-MERCK-0706ITA00046

PATIENT
  Age: 56 Year
  Sex: Male

DRUGS (6)
  1. ZOCOR [Suspect]
     Indication: HYPERCHOLESTEROLAEMIA
     Route: 048
     Dates: start: 20050101, end: 20070603
  2. CANDESARTAN CILEXETIL [Concomitant]
     Route: 048
     Dates: start: 20040101
  3. DIGOXIN [Concomitant]
     Route: 048
     Dates: start: 20040101
  4. BISOPROLOL FUMARATE [Concomitant]
     Route: 048
     Dates: start: 20040101
  5. FUROSEMIDE [Concomitant]
     Route: 048
     Dates: start: 20040101
  6. CANRENOATE POTASSIUM [Concomitant]
     Route: 048
     Dates: start: 20040101

REACTIONS (2)
  - HYPOKALAEMIA [None]
  - RHABDOMYOLYSIS [None]
